FAERS Safety Report 4956035-3 (Version None)
Quarter: 2006Q1

REPORT INFORMATION
  Report Type: 
  Country: None (occurrence: None)
  Receive Date: 20060328
  Receipt Date: 20060221
  Transmission Date: 20060701
  Serious: Yes (Death, Hospitalization)
  Sender: FDA-Public Use
  Company Number: US-MERCK-0602USA05380

PATIENT
  Age: 87 Year
  Sex: Female
  Weight: 54 kg

DRUGS (15)
  1. VIOXX [Suspect]
     Indication: OSTEOARTHRITIS
     Route: 048
     Dates: start: 20000115, end: 20020101
  2. VIOXX [Suspect]
     Route: 048
     Dates: start: 20030502, end: 20040201
  3. VIOXX [Suspect]
     Route: 048
     Dates: start: 20001218
  4. VIOXX [Suspect]
     Indication: SPINAL COLUMN STENOSIS
     Route: 048
     Dates: start: 20000115, end: 20020101
  5. VIOXX [Suspect]
     Route: 048
     Dates: start: 20030502, end: 20040201
  6. VIOXX [Suspect]
     Route: 048
     Dates: start: 20001218
  7. FOSAMAX [Concomitant]
     Route: 065
  8. HYZAAR [Concomitant]
     Route: 065
  9. LIPITOR [Concomitant]
     Route: 065
  10. TRIMOX [Concomitant]
     Route: 065
  11. DARVON [Concomitant]
     Route: 065
  12. ASPIRIN [Concomitant]
     Route: 065
  13. VITAMIN E [Concomitant]
     Route: 065
  14. CENTRUM [Concomitant]
     Route: 065
  15. BEXTRA [Suspect]
     Route: 065

REACTIONS (17)
  - ANAEMIA [None]
  - ANTIDIURETIC HORMONE ABNORMALITY [None]
  - ARTERIOSCLEROSIS [None]
  - ARTHROPATHY [None]
  - BLOOD PRESSURE INCREASED [None]
  - CEREBROVASCULAR ACCIDENT [None]
  - DYSURIA [None]
  - HYPERLIPIDAEMIA [None]
  - HYPOTENSION [None]
  - INAPPROPRIATE ANTIDIURETIC HORMONE SECRETION [None]
  - ISCHAEMIC STROKE [None]
  - MYOCARDIAL INFARCTION [None]
  - OSTEOARTHRITIS [None]
  - PAIN [None]
  - PNEUMONIA ASPIRATION [None]
  - PYREXIA [None]
  - SYNCOPE VASOVAGAL [None]
